FAERS Safety Report 4401225-1 (Version None)
Quarter: 2004Q3

REPORT INFORMATION
  Report Type: 
  Country: None (occurrence: None)
  Receive Date: 20040907
  Receipt Date: 20040107
  Transmission Date: 20050211
  Serious: No
  Sender: FDA-Public Use
  Company Number: US-BRISTOL-MYERS SQUIBB COMPANY-12472288

PATIENT
  Age: 77 Year
  Sex: Female
  Weight: 57 kg

DRUGS (6)
  1. COUMADIN [Suspect]
     Indication: HEART VALVE REPLACEMENT
     Dosage: 5 MG ON M-W-F, 2.5 MG ON T-TH
     Route: 048
     Dates: start: 20020301
  2. CALCIUM [Concomitant]
  3. VITAMIN D [Concomitant]
  4. TOPROL-XL [Concomitant]
  5. LIPITOR [Concomitant]
  6. ARICEPT [Concomitant]

REACTIONS (1)
  - PROTHROMBIN TIME ABNORMAL [None]
